FAERS Safety Report 19271358 (Version 3)
Quarter: 2021Q3

REPORT INFORMATION
  Report Type: Spontaneous
  Country: US (occurrence: US)
  Receive Date: 20210518
  Receipt Date: 20210816
  Transmission Date: 20211014
  Serious: Yes (Hospitalization, Other)
  Sender: FDA-Public Use
  Company Number: US-SA-2021SA156681

PATIENT

DRUGS (17)
  1. TOPROL XL [Concomitant]
     Active Substance: METOPROLOL SUCCINATE
     Dosage: UNK
     Dates: start: 20190810, end: 20201015
  2. DIALYVITE [Concomitant]
     Active Substance: ASCORBIC ACID\BIOTIN\CALCIUM PANTOTHENATE\COBALAMIN\FOLIC ACID\NIACINAMIDE\PYRIDOXINE HYDROCHLORIDE\RIBOFLAVIN\THIAMINE MONONITRATE
     Dosage: UNK
     Dates: start: 20200212
  3. COUMADIN [Concomitant]
     Active Substance: WARFARIN SODIUM
  4. MELATONIN [Concomitant]
     Active Substance: MELATONIN
     Dates: start: 20200727, end: 20201015
  5. KENALOG [Concomitant]
     Active Substance: TRIAMCINOLONE ACETONIDE
     Dates: start: 20200806, end: 20201015
  6. ASPIRIN [ACETYLSALICYLIC ACID] [Concomitant]
     Active Substance: ASPIRIN
  7. ARANESP [Concomitant]
     Active Substance: DARBEPOETIN ALFA
     Dates: start: 20200722
  8. ZOLOFT [Concomitant]
     Active Substance: SERTRALINE HYDROCHLORIDE
     Dates: start: 20200818
  9. MIDODRINE [Concomitant]
     Active Substance: MIDODRINE
  10. ARISTOCORT [TRIAMCINOLONE] [Concomitant]
     Dates: start: 20200806, end: 20201015
  11. ECOTRIN [Concomitant]
     Active Substance: ASPIRIN
     Dates: start: 20200806
  12. ULORIC [Concomitant]
     Active Substance: FEBUXOSTAT
     Dates: start: 20200106
  13. EMLA [Concomitant]
     Active Substance: LIDOCAINE\PRILOCAINE
     Dates: start: 20200806, end: 20201015
  14. PLAVIX [Suspect]
     Active Substance: CLOPIDOGREL BISULFATE
  15. VITAMIN D3 [Concomitant]
     Active Substance: CHOLECALCIFEROL
     Dosage: UNK
     Dates: start: 20190508
  16. ALDACTONE [Concomitant]
     Active Substance: SPIRONOLACTONE
     Dates: start: 20191122, end: 20201015
  17. KLOR?CON [Concomitant]
     Active Substance: POTASSIUM CHLORIDE
     Dates: start: 20191025, end: 20201015

REACTIONS (19)
  - Blood bilirubin increased [Recovering/Resolving]
  - Fall [Recovering/Resolving]
  - Seizure [Recovering/Resolving]
  - Syncope [Recovering/Resolving]
  - Encephalopathy [Recovering/Resolving]
  - Ecchymosis [Recovering/Resolving]
  - Intra-abdominal fluid collection [Recovering/Resolving]
  - Mass [Recovering/Resolving]
  - Encephalitis [Unknown]
  - Hypotension [Recovering/Resolving]
  - Dizziness [Recovering/Resolving]
  - Swelling [Unknown]
  - Vomiting [Recovering/Resolving]
  - Presyncope [Recovering/Resolving]
  - Gait disturbance [Recovering/Resolving]
  - Contusion [Unknown]
  - Electrocardiogram QT prolonged [Recovering/Resolving]
  - Haematoma [Recovering/Resolving]
  - Asthenia [Recovering/Resolving]

NARRATIVE: CASE EVENT DATE: 20200923
